FAERS Safety Report 12100549 (Version 4)
Quarter: 2016Q2

REPORT INFORMATION
  Report Type: Spontaneous
  Country: US (occurrence: US)
  Receive Date: 20160222
  Receipt Date: 20160608
  Transmission Date: 20160815
  Serious: Yes (Hospitalization, Other)
  Sender: FDA-Public Use
  Company Number: US-PFIZER INC-2016102056

PATIENT
  Age: 53 Year
  Sex: Female
  Weight: 54.43 kg

DRUGS (10)
  1. GABAPENTIN. [Suspect]
     Active Substance: GABAPENTIN
     Dosage: 300 MG, UNK (3 OR 4X A DAY)
     Dates: start: 2009, end: 201511
  2. PREMARIN [Concomitant]
     Active Substance: ESTROGENS, CONJUGATED
     Indication: HORMONE REPLACEMENT THERAPY
     Dosage: 0.9 MG, 1X/DAY
     Dates: start: 200006
  3. GABAPENTIN. [Suspect]
     Active Substance: GABAPENTIN
     Dosage: 100 MG, 4X/DAY
     Route: 048
     Dates: end: 2015
  4. DRY EYES [Concomitant]
     Active Substance: MINERAL OIL\PETROLATUM
     Indication: DRY EYE
     Dosage: UNK, AS NEEDED
     Dates: start: 2005
  5. GABAPENTIN. [Suspect]
     Active Substance: GABAPENTIN
     Indication: NEURALGIA
     Dosage: 300 MG, 3X/DAY
     Dates: start: 2009
  6. GABAPENTIN. [Suspect]
     Active Substance: GABAPENTIN
     Dosage: 600 MG, 3X/DAY
     Route: 048
     Dates: start: 2012
  7. GABAPENTIN. [Suspect]
     Active Substance: GABAPENTIN
     Dosage: 100 MG, UNK
  8. RESTASIS [Concomitant]
     Active Substance: CYCLOSPORINE
     Indication: DRY EYE
     Dosage: 2 GTT, 4X/DAY (1 DROP IN EACH EYE)
     Dates: start: 2005
  9. RESTASIS [Concomitant]
     Active Substance: CYCLOSPORINE
     Dosage: UNK, 2 TIMES A DAY, AS NEEDED
     Dates: start: 2000
  10. GABAPENTIN. [Suspect]
     Active Substance: GABAPENTIN
     Indication: NEUROPATHY PERIPHERAL
     Dosage: 100 MG, 1X/DAY
     Route: 048
     Dates: start: 2010

REACTIONS (7)
  - Groin pain [Not Recovered/Not Resolved]
  - Inflammation [Unknown]
  - Vaginal haemorrhage [Unknown]
  - Urinary incontinence [Recovering/Resolving]
  - Sedation [Recovered/Resolved]
  - Pelvic infection [Unknown]
  - Drug ineffective for unapproved indication [Recovered/Resolved]

NARRATIVE: CASE EVENT DATE: 2005
